FAERS Safety Report 6890372-0 (Version None)
Quarter: 2010Q3

REPORT INFORMATION
  Report Type: 
  Country: None (occurrence: None)
  Receive Date: 20100730
  Receipt Date: 20081017
  Transmission Date: 20110219
  Serious: No
  Sender: FDA-Public Use
  Company Number: US-PFIZER INC-2008088032

PATIENT
  Sex: Female
  Weight: 66.68 kg

DRUGS (8)
  1. LIPITOR [Suspect]
     Indication: BLOOD CHOLESTEROL INCREASED
     Route: 048
     Dates: start: 20040101
  2. HYDROCHLOROTHIAZIDE [Concomitant]
     Indication: HYPERTENSION
  3. FOSAMAX [Concomitant]
     Indication: ASTHMA
  4. NASONEX [Concomitant]
     Indication: ASTHMA
  5. CLARINEX [Concomitant]
     Indication: ASTHMA
  6. CLARINEX [Concomitant]
     Indication: HYPERSENSITIVITY
  7. ALL OTHER THERAPEUTIC PRODUCTS [Concomitant]
     Indication: HYPERSENSITIVITY
  8. NEXIUM [Concomitant]

REACTIONS (2)
  - MALAISE [None]
  - NAUSEA [None]
